FAERS Safety Report 16594543 (Version 1)
Quarter: 2019Q3

REPORT INFORMATION
  Report Type: Other
  Country: US (occurrence: US)
  Receive Date: 20190718
  Receipt Date: 20190718
  Transmission Date: 20191004
  Serious: No
  Sender: FDA-Public Use
  Company Number: US-SWEDISH ORPHAN BIOVITRUM-2019US0369

PATIENT
  Age: 9 Year
  Sex: Female

DRUGS (4)
  1. LIDOCAINE CREAM [Concomitant]
     Active Substance: LIDOCAINE
  2. PEPCID [Concomitant]
     Active Substance: FAMOTIDINE
  3. PREDNISONE. [Concomitant]
     Active Substance: PREDNISONE
  4. KINERET [Suspect]
     Active Substance: ANAKINRA
     Route: 058
     Dates: start: 20190202

REACTIONS (1)
  - Rash macular [Unknown]

NARRATIVE: CASE EVENT DATE: 201902
